FAERS Safety Report 25751297 (Version 1)
Quarter: 2025Q3

REPORT INFORMATION
  Report Type: Report from Study
  Country: EU (occurrence: EU)
  Receive Date: 20250902
  Receipt Date: 20250902
  Transmission Date: 20251021
  Serious: Yes (Death, Hospitalization, Other)
  Sender: ALEXION PHARMACEUTICALS
  Company Number: EU-ALXN-202406GLO000213FR

PATIENT
  Age: 81 Year
  Sex: Male
  Weight: 78 kg

DRUGS (14)
  1. SOLIRIS [Suspect]
     Active Substance: ECULIZUMAB
     Indication: Atypical haemolytic uraemic syndrome
     Dates: start: 20210219, end: 20210312
  2. SOLIRIS [Suspect]
     Active Substance: ECULIZUMAB
     Dates: start: 20210319, end: 20210621
  3. CLOPIDOGREL [Concomitant]
     Active Substance: CLOPIDOGREL BISULFATE
     Indication: Thrombosis prophylaxis
     Dosage: 75 MILLIGRAM, QD
     Dates: start: 20210415
  4. ARANESP [Concomitant]
     Active Substance: DARBEPOETIN ALFA
     Indication: Anaemia prophylaxis
  5. MOLSIDOMINE [Concomitant]
     Active Substance: MOLSIDOMINE
     Indication: Prophylaxis
     Dosage: 2 MILLIGRAM, BID
     Dates: start: 20210620, end: 2021
  6. ERGOCALCIFEROL [Concomitant]
     Active Substance: ERGOCALCIFEROL
     Indication: Vitamin supplementation
     Dosage: 100000 INTERNATIONAL UNIT, QMONTH
     Dates: start: 20220118
  7. ESOMEPRAZOLE [Concomitant]
     Active Substance: ESOMEPRAZOLE
     Indication: Gastrooesophageal reflux disease
     Dosage: 20 MILLIGRAM, QD
     Dates: start: 20220118
  8. KARDEGIC [Concomitant]
     Active Substance: ASPIRIN DL-LYSINE
     Indication: Prophylaxis
     Dosage: 75 MILLIGRAM, QD
     Dates: start: 20220118
  9. PRAVASTATIN [Concomitant]
     Active Substance: PRAVASTATIN
     Indication: Lipids increased
     Dosage: 20 MILLIGRAM, QD
     Dates: start: 20220118
  10. CALCIUM CARBONATE\CHOLECALCIFEROL [Concomitant]
     Active Substance: CALCIUM CARBONATE\CHOLECALCIFEROL
     Indication: Osteoporosis prophylaxis
     Dosage: 500 MILLIGRAM, QD
     Dates: start: 20220316
  11. SEVELAMER [Concomitant]
     Active Substance: SEVELAMER
     Indication: Hyperkalaemia
     Dosage: 800 MILLIGRAM, BID
     Dates: start: 20220509
  12. FOLIC ACID [Concomitant]
     Active Substance: FOLIC ACID
     Indication: Vitamin supplementation
     Dosage: 5 MILLIGRAM, TIW
     Dates: start: 20220629
  13. VENOFER [Concomitant]
     Active Substance: IRON SUCROSE
     Indication: Anaemia prophylaxis
  14. NEBIVOLOL [Concomitant]
     Active Substance: NEBIVOLOL
     Indication: Cardiac failure
     Dosage: 5 MILLIGRAM, QD
     Dates: start: 20230112

REACTIONS (1)
  - Lung adenocarcinoma [Fatal]

NARRATIVE: CASE EVENT DATE: 20240406
